FAERS Safety Report 8510659 (Version 2)
Quarter: 2013Q3

REPORT INFORMATION
  Report Type: Report from Study
  Country: AR (occurrence: AR)
  Receive Date: 20120413
  Receipt Date: 20130802
  Transmission Date: 20140515
  Serious: Yes (Hospitalization, Other)
  Sender: FDA-Public Use
  Company Number: AR-ROCHE-1056500

PATIENT
  Age: 70 Year
  Sex: Female

DRUGS (1)
  1. RANIBIZUMAB [Suspect]
     Indication: MACULOPATHY
     Dosage: 1 AMPOULE PER MONTH, SHE RECEIVED 3 AMPOULES IN TOTAL, IN MAR 2011, APR 2011 AND MAY 2011.
     Route: 050
     Dates: start: 201103

REACTIONS (9)
  - Abdominal strangulated hernia [Recovering/Resolving]
  - Abdominal adhesions [Recovering/Resolving]
  - Appendiceal abscess [Recovering/Resolving]
  - Peritonitis [Recovering/Resolving]
  - Wound treatment [Recovering/Resolving]
  - Cough [Recovering/Resolving]
  - Lacrimation increased [Recovering/Resolving]
  - Drug ineffective [Unknown]
  - Cataract [Not Recovered/Not Resolved]
